FAERS Safety Report 7211488-5 (Version None)
Quarter: 2011Q1

REPORT INFORMATION
  Report Type: 
  Country: None (occurrence: None)
  Receive Date: 20110105
  Receipt Date: 20101227
  Transmission Date: 20110831
  Serious: Yes (Other)
  Sender: FDA-Public Use
  Company Number: US-ELI_LILLY_AND_COMPANY-US201012006347

PATIENT
  Sex: Female
  Weight: 80.726 kg

DRUGS (7)
  1. PRANDIN [Concomitant]
     Indication: TYPE 2 DIABETES MELLITUS
     Dosage: 1 MG, 2/D
     Route: 048
  2. BYETTA [Suspect]
     Indication: TYPE 2 DIABETES MELLITUS
     Dosage: 5 UG, 2/D
     Route: 058
     Dates: start: 20050101
  3. BYETTA [Suspect]
     Dosage: 5 UG, 2/D
     Route: 058
     Dates: start: 20090701, end: 20090801
  4. BYETTA [Suspect]
     Dosage: 10 UG, 2/D
     Route: 058
     Dates: end: 20090701
  5. BYETTA [Suspect]
     Dosage: 10 UG, 2/D
     Route: 058
     Dates: start: 20090801
  6. ALLOPURINOL [Concomitant]
     Indication: NEPHROLITHIASIS
     Dosage: 300 MG, DAILY (1/D)
     Route: 048
  7. GLUCOPHAGE [Concomitant]
     Indication: TYPE 2 DIABETES MELLITUS
     Dosage: 1000 MG, 2/D
     Route: 048

REACTIONS (11)
  - FEELING ABNORMAL [None]
  - THYROID CANCER [None]
  - DIABETIC NEUROPATHY [None]
  - SOMNOLENCE [None]
  - INCORRECT DOSE ADMINISTERED [None]
  - MUSCLE SPASMS [None]
  - INSOMNIA [None]
  - BLOOD GLUCOSE INCREASED [None]
  - FATIGUE [None]
  - GLYCOSYLATED HAEMOGLOBIN INCREASED [None]
  - BLOOD GLUCOSE DECREASED [None]
